FAERS Safety Report 23494262 (Version 1)
Quarter: 2024Q1

REPORT INFORMATION
  Report Type: Spontaneous
  Country: CN (occurrence: CN)
  Receive Date: 20240207
  Receipt Date: 20240207
  Transmission Date: 20240410
  Serious: Yes (Other)
  Sender: FDA-Public Use
  Company Number: CN-PFIZER INC-PV202400017252

PATIENT
  Age: 9 Year
  Sex: Female
  Weight: 32 kg

DRUGS (6)
  1. METHOTREXATE SODIUM [Suspect]
     Active Substance: METHOTREXATE SODIUM
     Indication: Chemotherapy
     Dosage: 24.3 ML, 1X/DAY
     Route: 041
     Dates: start: 20240129, end: 20240130
  2. METHOTREXATE SODIUM [Suspect]
     Active Substance: METHOTREXATE SODIUM
     Dosage: 24.2 ML, 1X/DAY
     Route: 041
     Dates: start: 20240129, end: 20240130
  3. METHOTREXATE SODIUM [Suspect]
     Active Substance: METHOTREXATE SODIUM
     Dosage: 5 ML, 1X/DAY
     Route: 041
     Dates: start: 20240129, end: 20240130
  4. SODIUM CHLORIDE [Concomitant]
     Active Substance: SODIUM CHLORIDE
     Indication: Vehicle solution use
     Dosage: 250 ML, 1X/DAY
     Route: 041
     Dates: start: 20240129, end: 20240130
  5. SODIUM CHLORIDE [Concomitant]
     Active Substance: SODIUM CHLORIDE
     Dosage: 250 ML, 1X/DAY
     Route: 041
     Dates: start: 20240129, end: 20240130
  6. SODIUM CHLORIDE [Concomitant]
     Active Substance: SODIUM CHLORIDE
     Indication: Vehicle solution use
     Dosage: 25 ML, 1X/DAY
     Route: 041
     Dates: start: 20240129, end: 20240130

REACTIONS (3)
  - Mouth ulceration [Unknown]
  - Dermatitis herpetiformis [Unknown]
  - Pruritus [Unknown]

NARRATIVE: CASE EVENT DATE: 20240204
